FAERS Safety Report 16917073 (Version 1)
Quarter: 2019Q4

REPORT INFORMATION
  Report Type: Report from Study
  Country: GB (occurrence: GB)
  Receive Date: 20191015
  Receipt Date: 20191015
  Transmission Date: 20200122
  Serious: Yes (Other)
  Sender: FDA-Public Use
  Company Number: GB-TEVA-2019-GB-1121833

PATIENT
  Age: 30 Year
  Sex: Female

DRUGS (2)
  1. ETOPOSIDE. [Suspect]
     Active Substance: ETOPOSIDE
     Indication: ACUTE MYELOID LEUKAEMIA
     Dosage: AS A CONTINUOUS INFUSION OVER 34H
     Route: 041
  2. CYCLOPHOSPHAMIDE. [Suspect]
     Active Substance: CYCLOPHOSPHAMIDE
     Indication: ACUTE MYELOID LEUKAEMIA
     Dosage: OVER 2H DAILY FOR 3 DAYS
     Route: 041

REACTIONS (4)
  - Intracranial haematoma [Unknown]
  - Thrombocytopenia [Unknown]
  - Haemorrhage intracranial [Recovering/Resolving]
  - Bone marrow failure [Unknown]
